FAERS Safety Report 7250025-6 (Version None)
Quarter: 2011Q1

REPORT INFORMATION
  Report Type: 
  Country: None (occurrence: None)
  Receive Date: 20110128
  Receipt Date: 20110126
  Transmission Date: 20110831
  Serious: Yes (Hospitalization)
  Sender: FDA-Public Use
  Company Number: JP-PFIZER INC-2011010388

PATIENT
  Age: 2 Year

DRUGS (3)
  1. LEUKERIN [Suspect]
  2. BAKTAR [Concomitant]
  3. DIFLUCAN [Suspect]
     Indication: PROPHYLAXIS
     Dosage: 50 MG/DAY
     Route: 048
     Dates: start: 20100501

REACTIONS (2)
  - HYPOGLYCAEMIA [None]
  - ACIDOSIS [None]
